FAERS Safety Report 9902383 (Version 3)
Quarter: 2014Q1

REPORT INFORMATION
  Report Type: Spontaneous
  Country: AU (occurrence: AU)
  Receive Date: 20140217
  Receipt Date: 20140228
  Transmission Date: 20141002
  Serious: Yes (Other)
  Sender: FDA-Public Use
  Company Number: AU-PFIZER INC-2014037736

PATIENT
  Sex: Female

DRUGS (1)
  1. NORVAPINE [Suspect]
     Dosage: UNK

REACTIONS (5)
  - Blood pressure inadequately controlled [Recovered/Resolved]
  - Fatigue [Unknown]
  - Irritability [Unknown]
  - Asthenia [Unknown]
  - Product quality issue [Unknown]
